FAERS Safety Report 6297490-9 (Version None)
Quarter: 2009Q3

REPORT INFORMATION
  Report Type: 
  Country: None (occurrence: None)
  Receive Date: 20090804
  Receipt Date: 20090804
  Transmission Date: 20100115
  Serious: Yes (Hospitalization)
  Sender: FDA-Public Use
  Company Number: None

PATIENT
  Sex: Female
  Weight: 120 kg

DRUGS (6)
  1. CYCLOPHOSPHAMIDE [Suspect]
     Dosage: 1970 MG
     Dates: start: 20090722
  2. DOXORUBICIN HCL [Suspect]
     Dosage: 105.2 MG
     Dates: start: 20090720
  3. ETOPOSIDE [Suspect]
     Dosage: 524 MG
     Dates: start: 20090720
  4. G-CSF (FILGRASTIM AMGEN) [Suspect]
     Dosage: 5760 MCG
  5. PREDNISONE [Suspect]
     Dosage: 1500 MG
     Dates: start: 20090721
  6. VINCRISTINE SULFATE [Suspect]
     Dosage: 3.52 MG
     Dates: start: 20090720

REACTIONS (4)
  - ABDOMINAL PAIN [None]
  - ANAEMIA [None]
  - CONSTIPATION [None]
  - THROMBOCYTOPENIA [None]
